FAERS Safety Report 22340709 (Version 1)
Quarter: 2023Q2

REPORT INFORMATION
  Report Type: Spontaneous
  Country: NL (occurrence: None)
  Receive Date: 20230518
  Receipt Date: 20230518
  Transmission Date: 20230722
  Serious: Yes (Other)
  Sender: FDA-Public Use
  Company Number: 2023A108631

PATIENT
  Age: 70 Year
  Sex: Female

DRUGS (4)
  1. DURVALUMAB [Suspect]
     Active Substance: DURVALUMAB
     Indication: Non-small cell lung cancer
  2. NIVOLUMAB [Concomitant]
     Active Substance: NIVOLUMAB
  3. CISPLATIN\ETOPOSIDE [Concomitant]
     Active Substance: CISPLATIN\ETOPOSIDE
  4. PEMETREXED/CARBOPLATIN [Concomitant]

REACTIONS (2)
  - Acute myeloid leukaemia [Unknown]
  - Myelodysplastic syndrome [Unknown]
